FAERS Safety Report 8784362 (Version 1)
Quarter: 2012Q4

REPORT INFORMATION
  Report Type: 
  Country: US (occurrence: US)
  Receive Date: 20120913
  Receipt Date: 20120913
  Transmission Date: 20130627
  Serious: Yes (Hospitalization, Disabling, Other)
  Sender: FDA-Public Use
  Company Number: US-009507513-1203USA03303

PATIENT

DRUGS (4)
  1. FOSAMAX [Suspect]
     Indication: OSTEOPOROSIS
     Dosage: 70 mg, QW
     Route: 048
     Dates: start: 200203, end: 2011
  2. FOSAMAX [Suspect]
     Indication: OSTEOPOROSIS
     Dosage: 70 mg, UNK
     Route: 048
     Dates: start: 20100311
  3. ALENDRONATE SODIUM [Suspect]
     Indication: OSTEOPOROSIS
     Dosage: 70 mg, UNK
     Dates: start: 20080226
  4. ALENDRONATE SODIUM [Suspect]
     Indication: OSTEOPOROSIS
     Dosage: 70 mg, UNK
     Dates: start: 20100629

REACTIONS (31)
  - Femur fracture [Unknown]
  - Femur fracture [Unknown]
  - Osteoporosis [Unknown]
  - Stress fracture [Unknown]
  - Femur fracture [Unknown]
  - Adverse event [Unknown]
  - Femur fracture [Unknown]
  - Device failure [Unknown]
  - Gallbladder disorder [Unknown]
  - Low turnover osteopathy [Unknown]
  - Foot fracture [Unknown]
  - Visual acuity reduced [Unknown]
  - Spinal deformity [Unknown]
  - Renal cyst [Unknown]
  - Renal cyst haemorrhage [Unknown]
  - Arthropathy [Unknown]
  - Intervertebral disc disorder [Unknown]
  - Diverticulum [Unknown]
  - Vertebral foraminal stenosis [Unknown]
  - Neuropathy peripheral [Unknown]
  - Peripheral sensorimotor neuropathy [Unknown]
  - Myopathy [Unknown]
  - Adverse drug reaction [Unknown]
  - Spinal fracture [Unknown]
  - Osteoarthritis [Unknown]
  - Hypertension [Unknown]
  - Spinal osteoarthritis [Unknown]
  - Adverse event [Unknown]
  - Blood cholesterol increased [Unknown]
  - Back pain [Unknown]
  - Pain in extremity [Unknown]
